FAERS Safety Report 12287243 (Version 1)
Quarter: 2016Q2

REPORT INFORMATION
  Report Type: Spontaneous
  Country: US (occurrence: US)
  Receive Date: 20160420
  Receipt Date: 20160420
  Transmission Date: 20160815
  Serious: No
  Sender: FDA-Public Use
  Company Number: US-PIERREL PHARMA S.P.A.-2015PIR00016

PATIENT
  Age: 61 Year
  Sex: Female

DRUGS (1)
  1. ORABLOC [Suspect]
     Active Substance: ARTICAINE HYDROCHLORIDE\EPINEPHRINE BITARTRATE
     Indication: LOCAL ANAESTHESIA
     Dosage: UNK UNK, ONCE
     Route: 004
     Dates: start: 20150416, end: 20150416

REACTIONS (5)
  - Palpitations [None]
  - Anxiety [None]
  - Panic attack [Recovered/Resolved]
  - Dizziness [None]
  - Drug effect prolonged [Recovered/Resolved]

NARRATIVE: CASE EVENT DATE: 20150416
